FAERS Safety Report 20596934 (Version 2)
Quarter: 2023Q1

REPORT INFORMATION
  Report Type: Spontaneous
  Country: US (occurrence: US)
  Receive Date: 20220315
  Receipt Date: 20230313
  Transmission Date: 20230417
  Serious: No
  Sender: FDA-Public Use
  Company Number: US-PERRIGO-22US001089

PATIENT
  Age: 71 Year
  Sex: Male
  Weight: 89.342 kg

DRUGS (2)
  1. NICOTINE POLACRILEX [Suspect]
     Active Substance: NICOTINE
     Indication: Decreased appetite
     Dosage: 2 TO 4 MG, UNKNOWN
     Route: 002
     Dates: start: 202112, end: 2022
  2. NICOTINE POLACRILEX [Suspect]
     Active Substance: NICOTINE
     Indication: Supplementation therapy
     Dosage: 2 MG, PRN
     Route: 002
     Dates: start: 2022

REACTIONS (5)
  - Insomnia [Not Recovered/Not Resolved]
  - Nicotine dependence [Not Recovered/Not Resolved]
  - Weight decreased [Not Recovered/Not Resolved]
  - Off label use [Not Recovered/Not Resolved]
  - Wrong technique in product usage process [Not Recovered/Not Resolved]

NARRATIVE: CASE EVENT DATE: 20211201
